FAERS Safety Report 8249181 (Version 9)
Quarter: 2012Q4

REPORT INFORMATION
  Report Type: Report from Study
  Country: ES (occurrence: ES)
  Receive Date: 20111117
  Receipt Date: 20121112
  Transmission Date: 20130627
  Serious: Yes (Hospitalization)
  Sender: FDA-Public Use
  Company Number: ES-SANOFI-AVENTIS-2011SA071996

PATIENT
  Age: 70 Year
  Sex: Male
  Weight: 93.5 kg

DRUGS (26)
  1. DOCETAXEL [Suspect]
     Indication: SOLID TUMOR
     Route: 042
     Dates: start: 20111005
  2. DOCETAXEL [Suspect]
     Indication: SOLID TUMOR
     Route: 042
     Dates: start: 20111024
  3. BLINDED THERAPY [Suspect]
     Indication: SOLID TUMOR
     Route: 048
     Dates: start: 20111006
  4. OMEPRAZOLE [Concomitant]
     Indication: GASTRIC ULCER PROPHYLAXIS
     Dates: start: 2007
  5. BISOPROLOL [Concomitant]
     Indication: HYPERTENSION ARTERIAL
     Dates: start: 2006
  6. SUTRIL [Concomitant]
     Indication: HYPERTENSION
     Dates: start: 2006, end: 20111022
  7. AAS [Concomitant]
     Dates: start: 2006
  8. OMACOR [Concomitant]
     Indication: HYPERCHOLESTEROLEMIA
     Dosage: Dose:1 unit(s)
     Dates: start: 2006
  9. ACOVIL [Concomitant]
     Indication: HYPERTENSION ARTERIAL
     Dates: start: 2006
  10. TIMOFTOL [Concomitant]
     Indication: OCULAR HYPERTENSION
  11. ATORVASTATIN [Concomitant]
     Indication: HYPERCHOLESTEROLEMIA
     Dates: start: 2006
  12. HEPARIN [Concomitant]
     Indication: THROMBOSIS PROPHYLAXIS
     Dosage: Dose:3500 unit(s)
  13. LORMETAZEPAM [Concomitant]
     Indication: INSOMNIA
  14. NATECAL [Concomitant]
     Indication: HYPOCALCEMIA
     Dates: start: 20111009
  15. NATECAL [Concomitant]
     Indication: HYPOCALCEMIA
     Dates: start: 20111010
  16. LYRICA [Concomitant]
     Indication: PAIN
     Dates: start: 2007
  17. TRAMADOL [Concomitant]
     Indication: ANALGESIA
  18. NOLOTIL [Concomitant]
     Dosage: Dose:1 unit(s)
  19. PARACETAMOL [Concomitant]
  20. ONDANSETRON [Concomitant]
     Dates: start: 20101005, end: 20111122
  21. FUROSEMIDA [Concomitant]
     Indication: HYPERTENSION
     Dosage: Dose:1 unit(s)
  22. FUROSEMIDA [Concomitant]
     Indication: EDEMA
     Dosage: Dose:1 unit(s)
  23. PRIMPERAN [Concomitant]
     Indication: NAUSEA
     Dates: start: 20111006
  24. NITROPLAST [Concomitant]
     Dates: start: 2006
  25. OXYCODONE HYDROCHLORIDE [Concomitant]
     Dosage: Dose:1 unit(s)
     Dates: start: 201111
  26. DEXAMETHASONE [Concomitant]
     Dates: start: 20111005, end: 20111122

REACTIONS (4)
  - Hypocalcaemia [Recovered/Resolved]
  - Hypophosphataemia [Recovered/Resolved]
  - Neutropenia [Recovered/Resolved]
  - Diarrhoea [Recovered/Resolved]
